FAERS Safety Report 4831958-4 (Version None)
Quarter: 2005Q4

REPORT INFORMATION
  Report Type: 
  Country: None (occurrence: None)
  Receive Date: 20051116
  Receipt Date: 20051110
  Transmission Date: 20060501
  Serious: Yes (Hospitalization)
  Sender: FDA-Public Use
  Company Number: J081-002-002076

PATIENT
  Age: 80 Year
  Sex: Female
  Weight: 42 kg

DRUGS (5)
  1. ARICEPT [Suspect]
     Indication: DEMENTIA ALZHEIMER'S TYPE
     Dosage: 5 MG, 1 IN 1 D, ORAL
     Route: 048
     Dates: end: 20050107
  2. DIOVAN [Concomitant]
  3. STOGAR (LAFUTIDINE) [Concomitant]
  4. ASPIRIN [Concomitant]
  5. FAMOTIDINE [Concomitant]

REACTIONS (7)
  - BRADYARRHYTHMIA [None]
  - CYANOSIS [None]
  - DEPRESSED LEVEL OF CONSCIOUSNESS [None]
  - NAUSEA [None]
  - SHOCK [None]
  - SINUS BRADYCARDIA [None]
  - YAWNING [None]
